FAERS Safety Report 10017358 (Version 1)
Quarter: 2014Q1

REPORT INFORMATION
  Report Type: Spontaneous
  Country: US (occurrence: None)
  Receive Date: 20140313
  Receipt Date: 20140313
  Transmission Date: 20141002
  Serious: Yes (Hospitalization)
  Sender: FDA-Public Use
  Company Number: None

PATIENT
  Age: 30 Year
  Sex: Female
  Weight: 90.72 kg

DRUGS (1)
  1. PARAGARD [Suspect]

REACTIONS (6)
  - Vomiting [None]
  - Diarrhoea [None]
  - White blood cell count increased [None]
  - Uterine perforation [None]
  - Complication of device removal [None]
  - Medical device complication [None]
